FAERS Safety Report 5563854-1 (Version None)
Quarter: 2007Q4

REPORT INFORMATION
  Report Type: 
  Country: None (occurrence: None)
  Receive Date: 20071217
  Receipt Date: 20070920
  Transmission Date: 20080405
  Serious: No
  Sender: FDA-Public Use
  Company Number: US-ASTRAZENECA-2007UW22246

PATIENT
  Age: 55 Year
  Sex: Female
  Weight: 67.1 kg

DRUGS (8)
  1. CRESTOR [Suspect]
     Indication: BLOOD CHOLESTEROL INCREASED
     Route: 048
     Dates: start: 20060101
  2. PLAVIX [Concomitant]
  3. LOPRESSOR [Concomitant]
  4. KLONOPIN [Concomitant]
  5. NORVASC [Concomitant]
  6. COZAAR [Concomitant]
  7. ASPIRIN [Concomitant]
  8. OMEPRAZOLE [Concomitant]
     Route: 048

REACTIONS (3)
  - ALANINE AMINOTRANSFERASE INCREASED [None]
  - ASPARTATE AMINOTRANSFERASE INCREASED [None]
  - WHITE BLOOD CELL COUNT INCREASED [None]
